FAERS Safety Report 19644914 (Version 2)
Quarter: 2021Q3

REPORT INFORMATION
  Report Type: Spontaneous
  Country: HR (occurrence: HR)
  Receive Date: 20210802
  Receipt Date: 20210902
  Transmission Date: 20211014
  Serious: Yes (Hospitalization, Other)
  Sender: FDA-Public Use
  Company Number: HR-ACS-002062

PATIENT
  Age: 46 Year
  Sex: Female
  Weight: 84 kg

DRUGS (9)
  1. PROPRANOLOL [Concomitant]
     Active Substance: PROPRANOLOL HYDROCHLORIDE
     Indication: MIGRAINE
     Route: 048
     Dates: start: 2018
  2. PREDNISONE. [Concomitant]
     Active Substance: PREDNISONE
     Route: 048
     Dates: start: 2018
  3. CONTROLOC [Interacting]
     Active Substance: PANTOPRAZOLE SODIUM
     Route: 048
     Dates: start: 20180405
  4. DICLOFENAC [Interacting]
     Active Substance: DICLOFENAC
     Indication: MIGRAINE
     Dosage: PROLONGED EXPOSURE; 150?200 MG DURING THE LAST 3 MONTHS
     Route: 048
  5. FURSEMID [Interacting]
     Active Substance: FUROSEMIDE
     Route: 048
     Dates: start: 20180325
  6. CEFTRIAXONE. [Suspect]
     Active Substance: CEFTRIAXONE
     Indication: PNEUMONIA
     Route: 042
     Dates: start: 20180429, end: 20180505
  7. SORTIS [Interacting]
     Active Substance: ATORVASTATIN
     Indication: DYSLIPIDAEMIA
     Route: 048
     Dates: start: 20180412, end: 20180510
  8. CALCITRIOL. [Concomitant]
     Active Substance: CALCITRIOL
     Route: 048
     Dates: start: 2018
  9. CALCIUM CARBONATE. [Concomitant]
     Active Substance: CALCIUM CARBONATE
     Route: 048
     Dates: start: 2018

REACTIONS (2)
  - Drug-induced liver injury [Recovered/Resolved]
  - Drug interaction [Recovered/Resolved]

NARRATIVE: CASE EVENT DATE: 2018
